FAERS Safety Report 20501425 (Version 1)
Quarter: 2022Q1

REPORT INFORMATION
  Report Type: Spontaneous
  Country: US (occurrence: US)
  Receive Date: 20220222
  Receipt Date: 20220222
  Transmission Date: 20220423
  Serious: Yes (Other)
  Sender: FDA-Public Use
  Company Number: US-PFIZER INC-202200238703

PATIENT
  Age: 34 Year
  Sex: Female
  Weight: 84.37 kg

DRUGS (1)
  1. DROPERIDOL [Suspect]
     Active Substance: DROPERIDOL
     Indication: Migraine
     Dosage: 5 MG
     Route: 042
     Dates: start: 20220207

REACTIONS (15)
  - Thrombosis [Recovered/Resolved]
  - Feeling abnormal [Recovered/Resolved]
  - Akathisia [Recovered/Resolved]
  - Agitation [Recovered/Resolved]
  - Abnormal behaviour [Recovered/Resolved]
  - Schizophreniform disorder [Recovered/Resolved]
  - Restless legs syndrome [Recovered/Resolved]
  - Dyskinesia [Recovered/Resolved]
  - Fibrin D dimer increased [Recovered/Resolved]
  - Psychotic disorder [Recovered/Resolved]
  - Feeling jittery [Not Recovered/Not Resolved]
  - Mental disorder [Recovered/Resolved]
  - Burning sensation [Recovered/Resolved]
  - Off label use [Unknown]
  - Prescribed overdose [Unknown]

NARRATIVE: CASE EVENT DATE: 20220207
